FAERS Safety Report 18131216 (Version 1)
Quarter: 2020Q3

REPORT INFORMATION
  Report Type: Spontaneous
  Country: US (occurrence: US)
  Receive Date: 20200810
  Receipt Date: 20200810
  Transmission Date: 20201103
  Serious: No
  Sender: FDA-Public Use
  Company Number: US-SA-2020SA204636

PATIENT

DRUGS (1)
  1. TOUJEO MAX [Suspect]
     Active Substance: INSULIN GLARGINE
     Indication: TYPE 2 DIABETES MELLITUS
     Dosage: 50 UNITS IN MORNING AND 10 UNITS AT NIGHT  DRUG INTERVAL DOSAGE :   2 TIMES A DAY
     Route: 065

REACTIONS (1)
  - Inappropriate schedule of product administration [Unknown]
